FAERS Safety Report 9285785 (Version 3)
Quarter: 2013Q2

REPORT INFORMATION
  Report Type: Spontaneous
  Country: GR (occurrence: None)
  Receive Date: 20130507
  Receipt Date: 20130604
  Transmission Date: 20140414
  Serious: Yes (Other)
  Sender: FDA-Public Use
  Company Number: AUR-APL-2013-03717

PATIENT
  Age: 34 Year
  Sex: Female

DRUGS (6)
  1. CLOPIDOGREL [Suspect]
     Indication: THROMBOSIS
  2. CLOPIDOGREL [Suspect]
  3. OMEPRAZOLE [Suspect]
     Indication: PRODUCT USED FOR UNKNOWN INDICATION
  4. PRASUGREL [Suspect]
     Indication: PRODUCT USED FOR UNKNOWN INDICATION
  5. INSULIN [Concomitant]
  6. ERYTHROPOIETIN [Concomitant]

REACTIONS (5)
  - Platelet function test abnormal [None]
  - Therapeutic response decreased [None]
  - Gene mutation identification test positive [None]
  - Drug interaction [None]
  - Off label use [None]
